FAERS Safety Report 8444222-1 (Version None)
Quarter: 2012Q2

REPORT INFORMATION
  Report Type: 
  Country: None (occurrence: None)
  Receive Date: 20120618
  Receipt Date: 20110714
  Transmission Date: 20120825
  Serious: No
  Sender: FDA-Public Use
  Company Number: US-GLAXOSMITHKLINE-A0936855A

PATIENT
  Age: 49 Year
  Sex: Female

DRUGS (7)
  1. OLUX [Suspect]
     Indication: DERMATOMYOSITIS
     Dosage: 1APP AS REQUIRED
     Route: 061
     Dates: start: 20070101
  2. CALCIUM [Concomitant]
  3. DEXLANSOPRAZOLE [Concomitant]
  4. FEMHRT [Concomitant]
  5. CO Q10 [Concomitant]
  6. PROBIOTICS [Concomitant]
  7. VITAMIN TAB [Concomitant]

REACTIONS (2)
  - HYPERAESTHESIA [None]
  - BURNING SENSATION [None]
